FAERS Safety Report 6377765-5 (Version None)
Quarter: 2009Q3

REPORT INFORMATION
  Report Type: 
  Country: None (occurrence: None)
  Receive Date: 20090925
  Receipt Date: 20090831
  Transmission Date: 20100115
  Serious: Yes (Other)
  Sender: FDA-Public Use
  Company Number: CHPA2009US18054

PATIENT
  Sex: Male
  Weight: 75.737 kg

DRUGS (7)
  1. BENEFIBER W/ WHEAT DEXTRIN (NCH) [Suspect]
     Indication: CONSTIPATION
     Dosage: 4 TSP AT ONCE, 2-3 TIMES EACH DAY
     Route: 048
     Dates: start: 20070101, end: 20090828
  2. BENEFIBER W/ WHEAT DEXTRIN (NCH) [Suspect]
     Dosage: 1 TSP ONCE OR TWICE DAILY
     Route: 048
     Dates: start: 20090829
  3. XANAX [Concomitant]
     Indication: ANXIETY
     Dosage: .25 MG, PRN
     Route: 048
     Dates: start: 20090701
  4. LEXAPRO [Concomitant]
     Indication: DEPRESSION
     Dosage: UNK, X 4 WEEKS
     Route: 048
  5. PRISTIQ [Concomitant]
     Indication: DEPRESSION
     Dosage: 50 MG, QD
     Dates: start: 20090827
  6. ZOCOR [Concomitant]
     Indication: BLOOD CHOLESTEROL INCREASED
     Dosage: 40 MG, QHS
     Route: 048
     Dates: start: 20000101
  7. TEGRETOL [Concomitant]
     Indication: TRIGEMINAL NEURALGIA
     Dosage: UNK, INITIALLY 200-400 MG, PRESENTLY TAKES ONLY 50 MG EACH DAY
     Route: 048
     Dates: start: 19890101

REACTIONS (7)
  - ANXIETY [None]
  - ASTHENIA [None]
  - DECREASED APPETITE [None]
  - DEPRESSION [None]
  - FATIGUE [None]
  - OVERDOSE [None]
  - WEIGHT DECREASED [None]
